FAERS Safety Report 17567082 (Version 1)
Quarter: 2020Q1

REPORT INFORMATION
  Report Type: Spontaneous
  Country: FR (occurrence: FR)
  Receive Date: 20200320
  Receipt Date: 20200320
  Transmission Date: 20200409
  Serious: Yes (Hospitalization, Other)
  Sender: FDA-Public Use
  Company Number: FR-AUROBINDO-AUR-APL-2020-013731

PATIENT
  Age: 69 Year
  Sex: Male
  Weight: 62 kg

DRUGS (11)
  1. VANCOMYCIN MYLAN [Suspect]
     Active Substance: VANCOMYCIN
     Indication: PNEUMONIA
     Dosage: 1 GRAM, ONCE A DAY
     Route: 042
     Dates: start: 20190119, end: 20190119
  2. AZACTAM [Suspect]
     Active Substance: AZTREONAM
     Indication: PNEUMONIA
     Dosage: 3 GRAM, ONCE A DAY
     Route: 042
     Dates: start: 20190111, end: 20190112
  3. CILASTATIN;IMIPENEM [Suspect]
     Active Substance: CILASTATIN SODIUM\IMIPENEM
     Indication: PNEUMONIA
     Dosage: 500 MILLIGRAM, EVERY FOUR HOUR
     Route: 042
     Dates: start: 20190114, end: 20190128
  4. CIPROFLOXACIN. [Suspect]
     Active Substance: CIPROFLOXACIN
     Indication: PNEUMONIA
     Dosage: 1000 MILLIGRAM
     Route: 048
     Dates: start: 20190107, end: 20190110
  5. VORICONAZOLE ARROW 200 MG POWDER FOR SOLUTION FOR INFUSION [Suspect]
     Active Substance: VORICONAZOLE
     Indication: PNEUMONIA
     Dosage: 400 MILLIGRAM, ONCE A DAY
     Route: 042
     Dates: start: 20190111, end: 20190118
  6. GENTAMICIN. [Suspect]
     Active Substance: GENTAMICIN
     Indication: PNEUMONIA
     Dosage: 400 MILLIGRAM
     Route: 042
     Dates: start: 20190105, end: 20190107
  7. TYGACIL [Suspect]
     Active Substance: TIGECYCLINE
     Indication: POLYCHONDRITIS
     Dosage: 50 MILLIGRAM, TWO TIMES A DAY
     Route: 042
     Dates: start: 20190304, end: 20190306
  8. METRONIDAZOLE. [Suspect]
     Active Substance: METRONIDAZOLE
     Indication: PNEUMONIA
     Dosage: 1500 MILLIGRAM
     Route: 042
     Dates: start: 20190105, end: 20190107
  9. LEVOFLOXACIN ARROW [Suspect]
     Active Substance: LEVOFLOXACIN
     Indication: PNEUMONIA
     Dosage: 500 MILLIGRAM
     Route: 042
     Dates: start: 20190111, end: 20190128
  10. CEFOTAXIME [Suspect]
     Active Substance: CEFOTAXIME SODIUM
     Indication: PNEUMONIA
     Dosage: 6 GRAM
     Route: 042
     Dates: start: 20190105, end: 20190110
  11. LINEZOLIDE KABI [Suspect]
     Active Substance: LINEZOLID
     Indication: PNEUMONIA
     Dosage: 600 MILLIGRAM, TWO TIMES A DAY
     Route: 042
     Dates: start: 20190110, end: 20190119

REACTIONS (1)
  - Clostridium difficile colitis [Recovered/Resolved]

NARRATIVE: CASE EVENT DATE: 201903
